FAERS Safety Report 6010139-5 (Version None)
Quarter: 2008Q4

REPORT INFORMATION
  Report Type: 
  Country: None (occurrence: None)
  Receive Date: 20081217
  Receipt Date: 20081217
  Transmission Date: 20090506
  Serious: Yes (Disabling)
  Sender: FDA-Public Use
  Company Number: None

PATIENT
  Sex: Female
  Weight: 62.5964 kg

DRUGS (1)
  1. ADVAIR DISKUS 100/50 [Suspect]
     Indication: CARDIAC FAILURE CONGESTIVE
     Dosage: ONCE A DAY
     Dates: start: 19890101, end: 20040101

REACTIONS (1)
  - MACULAR DEGENERATION [None]
